FAERS Safety Report 6138870-1 (Version None)
Quarter: 2009Q1

REPORT INFORMATION
  Report Type: 
  Country: None (occurrence: None)
  Receive Date: 20090331
  Receipt Date: 20090325
  Transmission Date: 20090719
  Serious: No
  Sender: FDA-Public Use
  Company Number: US-B.I. PHARMACEUTICALS,INC./RIDGEFIELD-2009-BP-03755BP

PATIENT
  Age: 80 Year
  Sex: Male

DRUGS (3)
  1. FLOMAX [Suspect]
     Indication: BLADDER SPASM
     Dosage: .4MG
     Route: 048
     Dates: start: 20090209
  2. SYNTHROID [Concomitant]
     Indication: HYPOTHYROIDISM
  3. VIAGRA [Concomitant]
     Indication: ERECTILE DYSFUNCTION

REACTIONS (3)
  - ASTHENIA [None]
  - INAPPROPRIATE SCHEDULE OF DRUG ADMINISTRATION [None]
  - SOMNOLENCE [None]
